FAERS Safety Report 10554663 (Version 1)
Quarter: 2014Q4

REPORT INFORMATION
  Report Type: Spontaneous
  Country: US (occurrence: None)
  Receive Date: 20141029
  Receipt Date: 20141029
  Transmission Date: 20150529
  Serious: Yes (Life-Threatening, Disabling)
  Sender: FDA-Public Use
  Company Number: None

PATIENT
  Age: 96 Year
  Sex: Female
  Weight: 49.9 kg

DRUGS (2)
  1. RISPERDONE 4MG 1 HS [Suspect]
     Active Substance: RISPERIDONE
     Indication: DEMENTIA
     Dosage: SYRUP, ONCE DAILY, TAKEN BY MOUTH
     Route: 048
     Dates: start: 20141002, end: 20141028
  2. RISPERDONE 4MG 1 HS [Suspect]
     Active Substance: RISPERIDONE
     Indication: PSYCHOTIC DISORDER
     Dosage: SYRUP, ONCE DAILY, TAKEN BY MOUTH
     Route: 048
     Dates: start: 20141002, end: 20141028

REACTIONS (11)
  - Fall [None]
  - Cardiac failure [None]
  - Condition aggravated [None]
  - Haematochezia [None]
  - Dysstasia [None]
  - Treatment noncompliance [None]
  - Pain in extremity [None]
  - Parkinsonism [None]
  - Syncope [None]
  - Iron deficiency anaemia [None]
  - Gait disturbance [None]

NARRATIVE: CASE EVENT DATE: 20141025
